FAERS Safety Report 23184794 (Version 1)
Quarter: 2023Q4

REPORT INFORMATION
  Report Type: Spontaneous
  Country: ES (occurrence: ES)
  Receive Date: 20231115
  Receipt Date: 20231115
  Transmission Date: 20240110
  Serious: Yes (Other)
  Sender: FDA-Public Use
  Company Number: ES-ROCHE-2733127

PATIENT
  Age: 44 Year
  Sex: Female
  Weight: 64 kg

DRUGS (4)
  1. CARBOPLATIN [Suspect]
     Active Substance: CARBOPLATIN
     Indication: Malignant peritoneal neoplasm
     Dosage: 765.98 MILLIGRAM (LAST DOSE ON 02/MAR/2021)
     Route: 042
     Dates: start: 20200916
  2. DOXORUBICIN [Suspect]
     Active Substance: DOXORUBICIN
     Indication: Malignant peritoneal neoplasm
     Dosage: 42.62 MILLIGRAM (LAST DOSE ON 02/MAR/2021, PEGYLATED LIPOSOMAL DOXORUBICIN)
     Route: 042
     Dates: start: 20200916
  3. ATEZOLIZUMAB [Suspect]
     Active Substance: ATEZOLIZUMAB
     Indication: Malignant peritoneal neoplasm
     Dosage: 840 MILLIGRAM (LAST DOSE ON 13/JUL/2021)
     Route: 042
     Dates: start: 20200916
  4. NIRAPARIB [Suspect]
     Active Substance: NIRAPARIB
     Indication: Malignant peritoneal neoplasm
     Dosage: 10 MILLIGRAM (LAST DOSE ON N 01/AUG/2021)
     Route: 048
     Dates: start: 20210420

REACTIONS (2)
  - Hyperthyroidism [Recovered/Resolved]
  - Palpitations [Recovered/Resolved]

NARRATIVE: CASE EVENT DATE: 20201103
